FAERS Safety Report 8826211 (Version 6)
Quarter: 2013Q1

REPORT INFORMATION
  Report Type: Report from Study
  Country: CA (occurrence: CA)
  Receive Date: 20121005
  Receipt Date: 20130125
  Transmission Date: 20140127
  Serious: Yes (Death, Other)
  Sender: FDA-Public Use
  Company Number: CA-ROCHE-1137562

PATIENT
  Age: 44 Year
  Sex: Male
  Weight: 110 kg

DRUGS (6)
  1. BEVACIZUMAB [Suspect]
     Indication: GLIOBLASTOMA
     Route: 042
     Dates: start: 20120823, end: 20121227
  2. BEVACIZUMAB [Suspect]
     Route: 065
     Dates: start: 20121227
  3. KEPPRA [Concomitant]
  4. DILANTIN [Concomitant]
  5. CLOBAZAM [Concomitant]
  6. COVERSYL [Concomitant]
     Route: 065
     Dates: start: 2012

REACTIONS (11)
  - Death [Fatal]
  - Hemiplegia [Not Recovered/Not Resolved]
  - Neoplasm [Unknown]
  - Protein urine [Not Recovered/Not Resolved]
  - Hypertension [Unknown]
  - Abdominal pain [Recovered/Resolved]
  - Vomiting [Recovered/Resolved]
  - Pyrexia [Recovered/Resolved]
  - Balance disorder [Not Recovered/Not Resolved]
  - Fatigue [Unknown]
  - Weight decreased [Unknown]
